FAERS Safety Report 21131462 (Version 1)
Quarter: 2022Q3

REPORT INFORMATION
  Report Type: Spontaneous
  Country: US (occurrence: US)
  Receive Date: 20220726
  Receipt Date: 20220726
  Transmission Date: 20221027
  Serious: No
  Sender: FDA-Public Use
  Company Number: US-BRISTOL-MYERS SQUIBB COMPANY-2022-079719

PATIENT
  Age: 83 Year
  Sex: Female

DRUGS (7)
  1. REVLIMID [Suspect]
     Active Substance: LENALIDOMIDE
     Indication: Plasma cell myeloma
     Dosage: FREQUENCY: 1-21 EVERY 28 DAY CYCLE
     Route: 048
     Dates: start: 20220426
  2. ASPIRIN LOW TAB 81MG EC [Concomitant]
     Indication: Product used for unknown indication
     Route: 065
  3. CALCIUM CITR TAB 200MG [Concomitant]
     Indication: Product used for unknown indication
     Route: 065
  4. GABAPENTIN TAB 800MG [Concomitant]
     Indication: Product used for unknown indication
     Route: 065
  5. GLIPIZIDE TAB 5MG [Concomitant]
     Indication: Product used for unknown indication
     Route: 065
  6. PANTOPRAZOLE SODIUM [Concomitant]
     Active Substance: PANTOPRAZOLE SODIUM
     Indication: Product used for unknown indication
     Route: 065
  7. VENTOLIN HFA [Concomitant]
     Active Substance: ALBUTEROL SULFATE
     Indication: Product used for unknown indication
     Route: 065

REACTIONS (4)
  - Dyspnoea [Unknown]
  - Oral pain [Unknown]
  - Fatigue [Unknown]
  - Constipation [Unknown]
